FAERS Safety Report 8914392 (Version 2)
Quarter: 2013Q2

REPORT INFORMATION
  Report Type: Report from Study
  Country: BR (occurrence: BR)
  Receive Date: 20121116
  Receipt Date: 20130420
  Transmission Date: 20140414
  Serious: No
  Sender: FDA-Public Use
  Company Number: BR-US-EMD SERONO, INC.-7173653

PATIENT
  Age: 31 Year
  Sex: Female

DRUGS (4)
  1. REBIF [Suspect]
     Indication: RELAPSING-REMITTING MULTIPLE SCLEROSIS
     Dates: start: 20120101
  2. IBUPROPHEN (IBUPROFEN) [Concomitant]
     Indication: PRODUCT USED FOR UNKNOWN INDICATION
  3. PARACETAMOL [Concomitant]
     Indication: PRODUCT USED FOR UNKNOWN INDICATION
  4. TANDRILAX [Concomitant]
     Indication: PRODUCT USED FOR UNKNOWN INDICATION

REACTIONS (10)
  - Neuritis [Recovered/Resolved]
  - Vision blurred [Recovering/Resolving]
  - Blindness [Recovering/Resolving]
  - Petechiae [Not Recovered/Not Resolved]
  - Alopecia [Not Recovered/Not Resolved]
  - Haematoma [Not Recovered/Not Resolved]
  - Platelet disorder [Unknown]
  - Thrombocytopenia [Recovered/Resolved]
  - Neutropenia [Unknown]
  - Blood thyroid stimulating hormone abnormal [Recovered/Resolved]
